FAERS Safety Report 8577707-8 (Version None)
Quarter: 2012Q3

REPORT INFORMATION
  Report Type: 
  Country: None (occurrence: None)
  Receive Date: 20120808
  Receipt Date: 20120727
  Transmission Date: 20120928
  Serious: Yes (Hospitalization, Other)
  Sender: FDA-Public Use
  Company Number: PT-AMGEN-PRTSP2012034242

PATIENT
  Age: 38 Year
  Sex: Female

DRUGS (7)
  1. ENBREL [Suspect]
     Indication: ANKYLOSING SPONDYLITIS
     Dosage: 50 MG, WEEKLY
     Route: 058
     Dates: start: 20120101, end: 20120401
  2. DEFLAZACORT [Concomitant]
     Indication: ANKYLOSING SPONDYLITIS
     Dosage: 6 MG DAILY
  3. NAPROXEN [Concomitant]
     Indication: ANKYLOSING SPONDYLITIS
     Dosage: UNK
  4. SULFASALAZINE [Concomitant]
     Indication: ANKYLOSING SPONDYLITIS
     Dosage: 1 G, 3X/DAY (8/8 HOURS)
     Dates: start: 20111001
  5. ACETAMINOPHEN [Concomitant]
     Indication: ANKYLOSING SPONDYLITIS
     Dosage: 1 G, 3X/DAY (8/8 HOURS)
  6. TRAMADOL HCL [Concomitant]
     Indication: ANKYLOSING SPONDYLITIS
     Dosage: 100 MG, 2X/DAY (12/12 HOURS)
  7. VOLTAREN [Concomitant]
     Indication: ANKYLOSING SPONDYLITIS
     Dosage: UNK

REACTIONS (3)
  - HYPERTENSION [None]
  - CONVULSION [None]
  - NEPHROLITHIASIS [None]
